FAERS Safety Report 8235285-7 (Version None)
Quarter: 2012Q1

REPORT INFORMATION
  Report Type: 
  Country: None (occurrence: None)
  Receive Date: 20120326
  Receipt Date: 20120321
  Transmission Date: 20120608
  Serious: No
  Sender: FDA-Public Use
  Company Number: US-PFIZER INC-2012075278

PATIENT
  Sex: Female
  Weight: 95.238 kg

DRUGS (1)
  1. LYRICA [Suspect]
     Dosage: UNKNOWN DOSAGE TAKEN TWICE DAILY
     Dates: start: 20120317, end: 20120320

REACTIONS (1)
  - OEDEMA PERIPHERAL [None]
